FAERS Safety Report 5369082-7 (Version None)
Quarter: 2007Q2

REPORT INFORMATION
  Report Type: 
  Country: None (occurrence: None)
  Receive Date: 20070625
  Receipt Date: 20070129
  Transmission Date: 20071010
  Serious: No
  Sender: FDA-Public Use
  Company Number: US-ASTRAZENECA-2007UW01875

PATIENT
  Age: 69 Year
  Sex: Female
  Weight: 74.8 kg

DRUGS (8)
  1. CRESTOR [Suspect]
     Indication: BLOOD CHOLESTEROL INCREASED
     Route: 048
     Dates: start: 20050701
  2. SYNTHROID [Concomitant]
  3. OSCAL [Concomitant]
  4. ACTINAL [Concomitant]
  5. ASPIRIN [Concomitant]
  6. GINGER ROOT [Concomitant]
  7. VITAMIN E [Concomitant]
  8. FISH OIL [Concomitant]

REACTIONS (5)
  - ARTHRALGIA [None]
  - CARDIOVASCULAR DISORDER [None]
  - FACE OEDEMA [None]
  - MYALGIA [None]
  - OEDEMA PERIPHERAL [None]
